FAERS Safety Report 6600684-3 (Version None)
Quarter: 2010Q1

REPORT INFORMATION
  Report Type: 
  Country: None (occurrence: None)
  Receive Date: 20100223
  Receipt Date: 20100223
  Transmission Date: 20100710
  Serious: Yes (Other)
  Sender: FDA-Public Use
  Company Number: None

PATIENT
  Age: 35 Year
  Sex: Female
  Weight: 95.2554 kg

DRUGS (2)
  1. SELDIC PM [Suspect]
     Indication: COUGH
     Dosage: TWO TEASPOONS EVERY TWO HOURS PO
     Route: 048
     Dates: start: 20100213, end: 20100214
  2. CORIC -REST OF SP. UNKNOWN- HBP MAXIMUM STRENGTH [Suspect]
     Indication: COUGH
     Dosage: CORIC ONE PILL OROPHARINGEAL  ONE TIME
     Route: 049
     Dates: start: 20100214, end: 20100214

REACTIONS (6)
  - HALLUCINATION [None]
  - HEMIPLEGIA [None]
  - HYPOAESTHESIA [None]
  - INAPPROPRIATE AFFECT [None]
  - INSOMNIA [None]
  - PALPITATIONS [None]
